FAERS Safety Report 9885842 (Version 1)
Quarter: 2014Q1

REPORT INFORMATION
  Report Type: Spontaneous
  Country: US (occurrence: US)
  Receive Date: 20140210
  Receipt Date: 20140210
  Transmission Date: 20141002
  Serious: Yes (Other)
  Sender: FDA-Public Use
  Company Number: US-PFIZER INC-2014033908

PATIENT
  Age: 55 Year
  Sex: Male
  Weight: 79.37 kg

DRUGS (4)
  1. CELEBREX [Suspect]
     Indication: PAIN
     Dosage: 100 MG, 2X/DAY
     Route: 048
     Dates: start: 20130915, end: 201312
  2. CELEBREX [Suspect]
     Dosage: 200 MG, 1X/DAY
     Route: 048
     Dates: start: 201312
  3. TEGRETOL [Concomitant]
     Dosage: 200 MG, 3X/DAY
  4. ACETAMINOPHEN [Concomitant]
     Indication: ARTHRITIS
     Dosage: 650 MG, 1X/DAY

REACTIONS (3)
  - Spinal cord compression [Unknown]
  - Spinal cord injury [Unknown]
  - Coordination abnormal [Unknown]
